FAERS Safety Report 18568055 (Version 2)
Quarter: 2020Q4

REPORT INFORMATION
  Report Type: Spontaneous
  Country: CN (occurrence: CN)
  Receive Date: 20201202
  Receipt Date: 20201222
  Transmission Date: 20210114
  Serious: Yes (Other)
  Sender: FDA-Public Use
  Company Number: CN-ASTRAZENECA-2020SF59333

PATIENT
  Age: 45 Year
  Sex: Male
  Weight: 65 kg

DRUGS (2)
  1. IRESSA [Suspect]
     Active Substance: GEFITINIB
     Indication: NON-SMALL CELL LUNG CANCER
     Route: 048
  2. APATINIB [Concomitant]
     Active Substance: APATINIB
     Dosage: DAILY
     Route: 048

REACTIONS (4)
  - Drug resistance [Unknown]
  - Pruritus [Recovered/Resolved]
  - Malignant neoplasm progression [Unknown]
  - Hypersensitivity [Recovered/Resolved]
